FAERS Safety Report 23960647 (Version 3)
Quarter: 2024Q3

REPORT INFORMATION
  Report Type: Spontaneous
  Country: JP (occurrence: JP)
  Receive Date: 20240611
  Receipt Date: 20240814
  Transmission Date: 20241017
  Serious: Yes (Hospitalization)
  Sender: UCB
  Company Number: JP-UCBJ-CD202405099UCBPHAPROD

PATIENT
  Age: 8 Year
  Sex: Male

DRUGS (9)
  1. VIMPAT [Suspect]
     Active Substance: LACOSAMIDE
     Indication: Epilepsy
     Dosage: 1 MILLIGRAM/KILOGRAM, 2X/DAY (BID)
     Route: 048
     Dates: start: 202203
  2. VIMPAT [Suspect]
     Active Substance: LACOSAMIDE
     Dosage: 3 MILLIGRAM/KILOGRAM, 2X/DAY (BID)
     Route: 048
     Dates: start: 202208
  3. VIMPAT [Suspect]
     Active Substance: LACOSAMIDE
     Dosage: 5 MILLIGRAM/KILOGRAM, 2X/DAY (BID)
     Route: 048
     Dates: start: 202307
  4. VIMPAT [Suspect]
     Active Substance: LACOSAMIDE
     Dosage: 3 MILLIGRAM/KILOGRAM, 2X/DAY (BID)
     Route: 048
     Dates: start: 202309
  5. VIMPAT [Suspect]
     Active Substance: LACOSAMIDE
     Dosage: UNK
     Route: 048
     Dates: end: 202311
  6. PERAMPANEL [Concomitant]
     Active Substance: PERAMPANEL
     Indication: Epilepsy
     Dosage: 1 MILLIGRAM, ONCE DAILY (QD)
     Route: 048
     Dates: start: 2023, end: 202312
  7. VALPROATE SODIUM [Concomitant]
     Active Substance: VALPROATE SODIUM
     Indication: Epilepsy
     Dosage: UNK
     Route: 048
     Dates: start: 202012
  8. VALPROATE SODIUM [Concomitant]
     Active Substance: VALPROATE SODIUM
     Dosage: 25 MILLIGRAM/KILOGRAM, ONCE DAILY (QD)
     Route: 048
     Dates: start: 202112, end: 202311
  9. VALPROATE SODIUM [Concomitant]
     Active Substance: VALPROATE SODIUM
     Dosage: UNK, 3X/DAY (TID)
     Route: 048
     Dates: end: 202312

REACTIONS (1)
  - Electroencephalogram abnormal [Recovered/Resolved]

NARRATIVE: CASE EVENT DATE: 20220801
